FAERS Safety Report 19477127 (Version 1)
Quarter: 2021Q2

REPORT INFORMATION
  Report Type: Spontaneous
  Country: US (occurrence: US)
  Receive Date: 20210629
  Receipt Date: 20210629
  Transmission Date: 20210717
  Serious: Yes (Hospitalization, Disabling)
  Sender: FDA-Public Use
  Company Number: None

PATIENT
  Age: 77 Year
  Sex: Female

DRUGS (1)
  1. CAPECITABINE 500MG [Suspect]
     Active Substance: CAPECITABINE
     Indication: COLON CANCER
     Route: 048
     Dates: start: 20210504, end: 20210619

REACTIONS (4)
  - Blood count abnormal [None]
  - Diarrhoea [None]
  - Asthenia [None]
  - Thrombosis [None]

NARRATIVE: CASE EVENT DATE: 20210619
